FAERS Safety Report 23584980 (Version 1)
Quarter: 2024Q1

REPORT INFORMATION
  Report Type: Spontaneous
  Country: GB (occurrence: GB)
  Receive Date: 20240301
  Receipt Date: 20240301
  Transmission Date: 20240410
  Serious: Yes (Life-Threatening, Other)
  Sender: FDA-Public Use
  Company Number: None

PATIENT

DRUGS (13)
  1. TRELEGY ELLIPTA [Suspect]
     Active Substance: FLUTICASONE FUROATE\UMECLIDINIUM BROMIDE\VILANTEROL TRIFENATATE
     Indication: Product used for unknown indication
     Dosage: 1 DF, QD(INHALE ONE PUFF ONCE A DAY TO RELIEVE BREATHLES)
     Route: 055
     Dates: start: 20231208
  2. ALLOPURINOL [Concomitant]
     Active Substance: ALLOPURINOL
     Indication: Product used for unknown indication
     Dosage: UNK(TO HELP PREVENT GOUT)
     Route: 065
     Dates: start: 20240117
  3. ATORVASTATIN [Concomitant]
     Active Substance: ATORVASTATIN
     Indication: Product used for unknown indication
     Dosage: 1 DF, QD(TAKE ONE TABLET ONCE A DAY)
     Route: 065
     Dates: start: 20221222
  4. COLCHICINE [Concomitant]
     Active Substance: COLCHICINE
     Indication: Gout
     Dosage: UNK(FOR ACUTE GOUT, TAKE ONE TABLET TWO TO FOUR TIM)
     Route: 065
     Dates: start: 20240101, end: 20240104
  5. DERMOL [Concomitant]
     Active Substance: BENZALKONIUM CHLORIDE\CHLORHEXIDINE HYDROCHLORIDE\ISOPROPYL MYRISTATE\PARAFFIN
     Indication: Product used for unknown indication
     Dosage: UNK(APPLY AS DIRECTED AS A SKIN MOISTURISER AND AS )
     Route: 065
     Dates: start: 20221222
  6. DOXAZOSIN [Concomitant]
     Active Substance: DOXAZOSIN MESYLATE
     Indication: Product used for unknown indication
     Dosage: 1 DF, QD(TAKE ONE TABLET ONCE A DAY. DOSE TO BE REVIEWED)
     Route: 065
     Dates: start: 20240219
  7. ACLIDINIUM BROMIDE\FORMOTEROL FUMARATE [Concomitant]
     Active Substance: ACLIDINIUM BROMIDE\FORMOTEROL FUMARATE
     Indication: Product used for unknown indication
     Dosage: 1 DF, BID(INHALE ONE DOSE TWICE DAILY)
     Route: 065
     Dates: start: 20221222
  8. EPIPEN [Concomitant]
     Active Substance: EPINEPHRINE
     Indication: Product used for unknown indication
     Dosage: UNK(FOR PATIENTS WEIGHING GREATER THAN 25KG. USE AS)
     Route: 065
     Dates: start: 20240221, end: 20240222
  9. LANSOPRAZOLE [Concomitant]
     Active Substance: LANSOPRAZOLE
     Indication: Product used for unknown indication
     Dosage: 1 DF, QD(TAKE ONE CAPSULE DAILY WHILE TAKING NAPROXEN)
     Route: 065
     Dates: start: 20240117, end: 20240214
  10. NAPROXEN [Concomitant]
     Active Substance: NAPROXEN
     Indication: Pain
     Dosage: 1 DF, BID(TAKE ONE TABLET TWICE DAILY WHEN REQUIRED FOR PAIN, WITH FOOD)
     Route: 065
     Dates: start: 20240117, end: 20240214
  11. PREDNISOLONE [Concomitant]
     Active Substance: PREDNISOLONE
     Indication: Product used for unknown indication
     Dosage: 8 DF, QD(TAKE EIGHT TABLETS ONCE DAILY FOR 5 DAYS)
     Route: 065
     Dates: start: 20240221
  12. SERTRALINE [Concomitant]
     Active Substance: SERTRALINE HYDROCHLORIDE
     Indication: Product used for unknown indication
     Dosage: 1 DF, QD(1OD)
     Route: 065
     Dates: start: 20221222
  13. TAMSULOSIN HYDROCHLORIDE [Concomitant]
     Active Substance: TAMSULOSIN HYDROCHLORIDE
     Indication: Product used for unknown indication
     Dosage: 1 DF, QD(TAKE ONE CAPSULE ONCE A DAY)
     Route: 065
     Dates: start: 20230706, end: 20240219

REACTIONS (1)
  - Anaphylactic reaction [Recovering/Resolving]

NARRATIVE: CASE EVENT DATE: 20240221
